FAERS Safety Report 6927749-0 (Version None)
Quarter: 2010Q3

REPORT INFORMATION
  Report Type: 
  Country: None (occurrence: None)
  Receive Date: 20100816
  Receipt Date: 20100816
  Transmission Date: 20110219
  Serious: Yes (Other)
  Sender: FDA-Public Use
  Company Number: None

PATIENT
  Age: 35 Year
  Sex: Female
  Weight: 65 kg

DRUGS (3)
  1. METHOCARBAMOL [Suspect]
     Indication: BACK PAIN
     Dosage: 500MG 3 PO
     Route: 048
     Dates: start: 20100729, end: 20100803
  2. METHOCARBAMOL [Suspect]
     Indication: NECK PAIN
     Dosage: 500MG 3 PO
     Route: 048
     Dates: start: 20100729, end: 20100803
  3. NAPROXEN [Suspect]
     Dosage: 500MG 2 PO
     Route: 048
     Dates: start: 20100729, end: 20100804

REACTIONS (2)
  - MIGRAINE [None]
  - TIC [None]
